FAERS Safety Report 8341663-8 (Version None)
Quarter: 2012Q2

REPORT INFORMATION
  Report Type: 
  Country: None (occurrence: None)
  Receive Date: 20120507
  Receipt Date: 20120502
  Transmission Date: 20120825
  Serious: Yes (Life-Threatening, Hospitalization)
  Sender: FDA-Public Use
  Company Number: CN-JNJFOC-20120408988

PATIENT
  Age: 25 Year
  Sex: Male

DRUGS (3)
  1. TYLENOL COLD [Suspect]
     Route: 048
  2. TYLENOL COLD [Suspect]
     Indication: NASOPHARYNGITIS
     Dosage: TOOK A TOTAL OF 6 TABLETS
     Route: 048
     Dates: start: 20120401, end: 20120401
  3. IBUPROFEN TABLETS [Suspect]
     Indication: PRODUCT USED FOR UNKNOWN INDICATION
     Dosage: TOOK A TOTAL OF 3 ^PIECES^
     Route: 048
     Dates: start: 20120401, end: 20120401

REACTIONS (5)
  - HEPATORENAL SYNDROME [None]
  - COMA [None]
  - LUNG INFECTION [None]
  - HEPATIC FAILURE [None]
  - TOXICITY TO VARIOUS AGENTS [None]
